FAERS Safety Report 17305104 (Version 2)
Quarter: 2020Q1

REPORT INFORMATION
  Report Type: Spontaneous
  Country: NZ (occurrence: NZ)
  Receive Date: 20200122
  Receipt Date: 20200205
  Transmission Date: 20200409
  Serious: Yes (Hospitalization, Other)
  Sender: FDA-Public Use
  Company Number: NZ-BEH-2020111865

PATIENT
  Age: 88 Year
  Sex: Female
  Weight: 80 kg

DRUGS (5)
  1. PRIVIGEN [Suspect]
     Active Substance: HUMAN IMMUNOGLOBULIN G
     Indication: THROMBOCYTOPENIA
     Dosage: 60ML/HR; 15 ML ADMINISTERED
     Route: 042
     Dates: start: 20200110, end: 20200110
  2. PLATELETS [Concomitant]
     Active Substance: HUMAN PLATELET, ALLOGENIC
     Dosage: 1 UNIT
     Dates: start: 20200112, end: 20200112
  3. PRIVIGEN [Suspect]
     Active Substance: HUMAN IMMUNOGLOBULIN G
     Indication: IMMUNE THROMBOCYTOPENIC PURPURA
     Dosage: SLOWER RATE
     Route: 042
     Dates: start: 20200111, end: 20200111
  4. RED CELL SUSPENSION [Concomitant]
     Indication: HAEMOGLOBIN DECREASED
     Dosage: 2 UNITS
     Dates: start: 20200113, end: 20200113
  5. NORMAL SALINE [Concomitant]
     Active Substance: SODIUM CHLORIDE
     Route: 042

REACTIONS (5)
  - Body temperature increased [Recovered/Resolved]
  - Drug ineffective [Not Recovered/Not Resolved]
  - Haemoglobin decreased [Recovered/Resolved]
  - Pyrexia [Recovered/Resolved]
  - Haemorrhage intracranial [Not Recovered/Not Resolved]

NARRATIVE: CASE EVENT DATE: 202001
